FAERS Safety Report 5892575-0 (Version None)
Quarter: 2008Q3

REPORT INFORMATION
  Report Type: 
  Country: None (occurrence: None)
  Receive Date: 20080915
  Receipt Date: 20080915
  Transmission Date: 20090109
  Serious: No
  Sender: FDA-Public Use
  Company Number: None

PATIENT
  Age: 66 Year
  Sex: Male

DRUGS (1)
  1. CARBOPLATIN [Suspect]
     Dosage: ONCE IV PIGGYBACK

REACTIONS (4)
  - ERYTHEMA [None]
  - HYPERHIDROSIS [None]
  - INCONTINENCE [None]
  - SYNCOPE [None]
